FAERS Safety Report 7532803-9 (Version None)
Quarter: 2011Q2

REPORT INFORMATION
  Report Type: 
  Country: None (occurrence: None)
  Receive Date: 20110608
  Receipt Date: 20110601
  Transmission Date: 20111010
  Serious: Yes (Other)
  Sender: FDA-Public Use
  Company Number: B0724802A

PATIENT

DRUGS (2)
  1. CAPECITABINE [Suspect]
     Route: 065
     Dates: start: 20090621
  2. LAPATINIB [Suspect]
     Route: 048
     Dates: start: 20090721

REACTIONS (6)
  - HYPONATRAEMIA [None]
  - ASPARTATE AMINOTRANSFERASE INCREASED [None]
  - HYPERBILIRUBINAEMIA [None]
  - PALMAR-PLANTAR ERYTHRODYSAESTHESIA SYNDROME [None]
  - DIARRHOEA [None]
  - NEUTROPENIA [None]
